FAERS Safety Report 5046597-2 (Version None)
Quarter: 2006Q3

REPORT INFORMATION
  Report Type: 
  Country: None (occurrence: None)
  Receive Date: 20060706
  Receipt Date: 20060706
  Transmission Date: 20061208
  Serious: Yes (Hospitalization)
  Sender: FDA-Public Use
  Company Number: None

PATIENT
  Sex: Female
  Weight: 102 kg

DRUGS (3)
  1. CISPLATIN [Suspect]
     Dosage: 100 MG
  2. DOXORUBICIN HYDROCHLORIDE [Suspect]
     Dosage: 90 MG
  3. TAXOL [Suspect]
     Dosage: 320 MG

REACTIONS (14)
  - ANXIETY [None]
  - BACTERIA BLOOD IDENTIFIED [None]
  - DYSPNOEA [None]
  - FATIGUE [None]
  - HYPOTENSION [None]
  - NAUSEA [None]
  - NEUTROPENIA [None]
  - OXYGEN SATURATION DECREASED [None]
  - PAIN [None]
  - PNEUMONIA [None]
  - SEPTIC SHOCK [None]
  - SOMNOLENCE [None]
  - TACHYCARDIA [None]
  - VOMITING [None]
